FAERS Safety Report 25791185 (Version 1)
Quarter: 2025Q3

REPORT INFORMATION
  Report Type: Spontaneous
  Country: US (occurrence: None)
  Receive Date: 20250910
  Receipt Date: 20250910
  Transmission Date: 20251021
  Serious: Yes (Other)
  Sender: FDA-CTU
  Company Number: None

PATIENT
  Age: 59 Year
  Sex: Female
  Weight: 60.75 kg

DRUGS (1)
  1. TOLCYLEN [Suspect]
     Active Substance: TOLNAFTATE
     Indication: Onychomycosis
     Dosage: OTHER QUANTITY : 1 DIME SIZE;?FREQUENCY : AT BEDTIME;?
     Route: 061
     Dates: start: 20250819, end: 20250903

REACTIONS (2)
  - Drug hypersensitivity [None]
  - Burns third degree [None]

NARRATIVE: CASE EVENT DATE: 20250901
